FAERS Safety Report 7042352-2 (Version None)
Quarter: 2010Q4

REPORT INFORMATION
  Report Type: 
  Country: None (occurrence: None)
  Receive Date: 20101013
  Receipt Date: 20100412
  Transmission Date: 20110411
  Serious: No
  Sender: FDA-Public Use
  Company Number: US-ASTRAZENECA-2010SE16032

PATIENT
  Sex: Male
  Weight: 108 kg

DRUGS (1)
  1. SYMBICORT [Suspect]
     Dosage: 80/4.5, 2 PUFFS
     Route: 055
     Dates: start: 20090801

REACTIONS (3)
  - AMNESIA [None]
  - NASAL CONGESTION [None]
  - TREMOR [None]
